FAERS Safety Report 8359558-2 (Version None)
Quarter: 2012Q2

REPORT INFORMATION
  Report Type: 
  Country: None (occurrence: None)
  Receive Date: 20120515
  Receipt Date: 20120508
  Transmission Date: 20120825
  Serious: Yes (Death)
  Sender: FDA-Public Use
  Company Number: US-JNJFOC-20120508489

PATIENT
  Sex: Female
  Weight: 76.66 kg

DRUGS (6)
  1. STELARA [Suspect]
     Indication: PSORIASIS
     Route: 058
     Dates: start: 20111011, end: 20120203
  2. SIMVASTATIN [Concomitant]
     Route: 048
  3. PLAVIX [Concomitant]
     Route: 048
  4. NEXIUM [Concomitant]
     Route: 048
  5. CARVEDILOL [Concomitant]
     Route: 048
  6. ALPRAZOLAM [Concomitant]
     Route: 048

REACTIONS (1)
  - CORONARY ARTERY DISEASE [None]
